FAERS Safety Report 20097471 (Version 1)
Quarter: 2021Q4

REPORT INFORMATION
  Report Type: Spontaneous
  Country: CN (occurrence: CN)
  Receive Date: 20211122
  Receipt Date: 20211122
  Transmission Date: 20220303
  Serious: Yes (Death, Other)
  Sender: FDA-Public Use
  Company Number: CN-AMGEN-CHNSP2021181971

PATIENT

DRUGS (3)
  1. PROLIA [Suspect]
     Active Substance: DENOSUMAB
     Indication: Osteoporosis
     Dosage: UNK
     Route: 058
  2. CALCIUM [Concomitant]
     Active Substance: CALCIUM
     Dosage: 1000 MILLIGRAM
  3. VITAMIN D3 [Concomitant]
     Active Substance: CHOLECALCIFEROL
     Dosage: 800 INTERNATIONAL UNIT

REACTIONS (12)
  - Death [Fatal]
  - Acute coronary syndrome [Fatal]
  - Acute kidney injury [Fatal]
  - Metastatic neoplasm [Fatal]
  - Chronic obstructive pulmonary disease [Fatal]
  - Intestinal obstruction [Fatal]
  - Hypervolaemia [Fatal]
  - Pneumonia [Fatal]
  - Osteoporotic fracture [Unknown]
  - Spinal compression fracture [Unknown]
  - Product dose omission issue [Unknown]
  - Fall [Unknown]
